FAERS Safety Report 10038592 (Version 1)
Quarter: 2014Q1

REPORT INFORMATION
  Report Type: Report from Study
  Country: US (occurrence: US)
  Receive Date: 20140326
  Receipt Date: 20140326
  Transmission Date: 20141002
  Serious: Yes (Death, Other)
  Sender: FDA-Public Use
  Company Number: US-PFIZER INC-2014080393

PATIENT
  Age: 19 Year
  Sex: Female

DRUGS (3)
  1. PHENYTOIN [Suspect]
     Indication: CONVULSION
     Dosage: UNK
  2. PHENOBARBITAL [Suspect]
     Indication: CONVULSION
     Dosage: UNK
  3. MEPHOBARBITAL [Suspect]
     Indication: CONVULSION
     Dosage: UNK

REACTIONS (7)
  - Drug hypersensitivity [Fatal]
  - Myocarditis [Fatal]
  - Pyrexia [Unknown]
  - Rash [Unknown]
  - White blood cell count increased [Unknown]
  - Eosinophilia [Unknown]
  - Hepatic enzyme increased [Unknown]
